FAERS Safety Report 8439792-3 (Version None)
Quarter: 2012Q2

REPORT INFORMATION
  Report Type: 
  Country: None (occurrence: None)
  Receive Date: 20120615
  Receipt Date: 20120607
  Transmission Date: 20120825
  Serious: No
  Sender: FDA-Public Use
  Company Number: US-B.I. PHARMACEUTICALS,INC./RIDGEFIELD-2012-BP-13229BP

PATIENT
  Sex: Male

DRUGS (4)
  1. VERAPAMIL [Concomitant]
     Indication: HYPERTENSION
     Dosage: 120 MG
     Route: 048
  2. NEXIUM [Concomitant]
     Indication: DYSPEPSIA
     Dosage: 40 MG
     Route: 048
  3. PRADAXA [Suspect]
     Indication: ATRIAL FIBRILLATION
     Dosage: 300 MG
     Route: 048
     Dates: start: 20110601
  4. COREG [Concomitant]
     Indication: HYPERTENSION
     Route: 048

REACTIONS (1)
  - SCIATICA [None]
